FAERS Safety Report 5364396-9 (Version None)
Quarter: 2007Q2

REPORT INFORMATION
  Report Type: 
  Country: None (occurrence: None)
  Receive Date: 20070618
  Receipt Date: 20070518
  Transmission Date: 20071010
  Serious: Yes (Other)
  Sender: FDA-Public Use
  Company Number: 4897

PATIENT
  Age: 23 Year
  Sex: Female

DRUGS (3)
  1. AMNESTEEM [Suspect]
     Indication: ACNE
     Dosage: 30 MG, QD, PO
     Route: 048
     Dates: start: 20070106, end: 20070428
  2. ORAL CONTRACEPTIVES [Concomitant]
  3. ADDERALL 10 [Concomitant]

REACTIONS (4)
  - DRUG EXPOSURE DURING PREGNANCY [None]
  - PREGNANCY [None]
  - SINUSITIS [None]
  - TOOTH ABSCESS [None]
